FAERS Safety Report 22381474 (Version 7)
Quarter: 2023Q4

REPORT INFORMATION
  Report Type: Report from Study
  Country: ES (occurrence: None)
  Receive Date: 20230530
  Receipt Date: 20231203
  Transmission Date: 20240109
  Serious: Yes (Hospitalization)
  Sender: FDA-Public Use
  Company Number: ES-ROCHE-3358065

PATIENT
  Age: 46 Year
  Sex: Female
  Weight: 54 kg

DRUGS (5)
  1. ATEZOLIZUMAB [Suspect]
     Active Substance: ATEZOLIZUMAB
     Indication: Ovarian epithelial cancer
     Dosage: START DATE OF MOST RECENT DOSE(1200MG) OF STUDY DRUG PRIOR TOAE/ SAE : 18/MAY/2023 1: 57 PM TO 2: 30
     Route: 041
     Dates: start: 20220113
  2. BEVACIZUMAB [Suspect]
     Active Substance: BEVACIZUMAB
     Indication: Ovarian epithelial cancer
     Dosage: START AND END DATE OF MOST RECENT DOSE (825 MG) OF STUDY DRUG PRIOR TO AE/SAE 18/MAY/2023 FROM 2: 40
     Route: 042
     Dates: start: 20220113
  3. LANSOPRAZOLE [Concomitant]
     Active Substance: LANSOPRAZOLE
     Indication: Gastritis
     Route: 048
  4. OMEPRAZOLE [Concomitant]
     Active Substance: OMEPRAZOLE
     Indication: Gastritis
     Route: 048
     Dates: start: 20220131
  5. CINITAPRIDE TARTRATE [Concomitant]
     Active Substance: CINITAPRIDE TARTRATE
     Indication: Gastroenteritis
     Route: 048
     Dates: start: 20220423

REACTIONS (1)
  - Ischaemic stroke [Recovered/Resolved]

NARRATIVE: CASE EVENT DATE: 20230524
